FAERS Safety Report 5836519-6 (Version None)
Quarter: 2008Q3

REPORT INFORMATION
  Report Type: 
  Country: None (occurrence: None)
  Receive Date: 20080729
  Receipt Date: 20080729
  Transmission Date: 20090109
  Serious: Yes (Other)
  Sender: FDA-Public Use
  Company Number: None

PATIENT
  Age: 21 Year
  Sex: Female
  Weight: 99.5645 kg

DRUGS (2)
  1. GABAPENTIN [Suspect]
     Indication: BIPOLAR DISORDER
     Dosage: 300MG 3X DAY PO
     Route: 048
     Dates: start: 20000201, end: 20020712
  2. GABAPENTIN [Suspect]
     Dates: start: 20080319, end: 20080728

REACTIONS (2)
  - AGGRESSION [None]
  - WEIGHT INCREASED [None]
